FAERS Safety Report 8914112 (Version 3)
Quarter: 2012Q4

REPORT INFORMATION
  Report Type: 
  Country: JP (occurrence: JP)
  Receive Date: 20121119
  Receipt Date: 20121210
  Transmission Date: 20130627
  Serious: Yes (Hospitalization, Other)
  Sender: FDA-Public Use
  Company Number: JP-GE HEALTHCARE MEDICAL DIAGNOSTICS-OMPQ-NO-1211S-1209

PATIENT
  Age: 74 Year
  Sex: Male

DRUGS (3)
  1. OMNIPAQUE [Suspect]
     Indication: HEPATIC CIRRHOSIS
     Route: 042
     Dates: start: 20120903, end: 20120903
  2. OMNIPAQUE [Suspect]
     Indication: HEPATIC NEOPLASM MALIGNANT
  3. OMNIPAQUE [Suspect]
     Indication: DIAGNOSTIC PROCEDURE

REACTIONS (7)
  - Anaphylactoid shock [Recovered/Resolved]
  - Cold sweat [Recovered/Resolved]
  - Blood pressure decreased [Recovered/Resolved]
  - Dyspnoea [Recovered/Resolved]
  - Chest pain [Recovered/Resolved]
  - Loss of consciousness [Recovered/Resolved]
  - Myocardial infarction [Recovered/Resolved]
